FAERS Safety Report 12328500 (Version 1)
Quarter: 2016Q2

REPORT INFORMATION
  Report Type: Spontaneous
  Country: US (occurrence: US)
  Receive Date: 20160503
  Receipt Date: 20160503
  Transmission Date: 20160815
  Serious: No
  Sender: FDA-Public Use
  Company Number: US-BEH-2015048611

PATIENT
  Sex: Female
  Weight: 42 kg

DRUGS (12)
  1. EPIPEN [Concomitant]
     Active Substance: EPINEPHRINE
  2. ALBUTEROL. [Concomitant]
     Active Substance: ALBUTEROL
  3. ADVAIR HFA [Concomitant]
     Active Substance: FLUTICASONE PROPIONATE\SALMETEROL XINAFOATE
  4. DIPHENHYDRAMINE. [Concomitant]
     Active Substance: DIPHENHYDRAMINE
  5. LMX (LIDOCAINE) [Concomitant]
  6. LO LOESTRIN FE [Concomitant]
     Active Substance: ETHINYL ESTRADIOL\NORETHINDRONE ACETATE
  7. COMBIVENT [Concomitant]
     Active Substance: ALBUTEROL SULFATE\IPRATROPIUM BROMIDE
  8. IBUPROFEN. [Concomitant]
     Active Substance: IBUPROFEN
  9. SINGULAIR [Concomitant]
     Active Substance: MONTELUKAST SODIUM
  10. HIZENTRA [Suspect]
     Active Substance: HUMAN IMMUNOGLOBULIN G
     Indication: HYPOGAMMAGLOBULINAEMIA
     Route: 058
  11. ACETAMINOPHEN. [Concomitant]
     Active Substance: ACETAMINOPHEN
  12. ZYRTEC [Concomitant]
     Active Substance: CETIRIZINE HYDROCHLORIDE

REACTIONS (2)
  - Infusion site bruising [Unknown]
  - Infusion site pain [Unknown]
